FAERS Safety Report 6934831-0 (Version None)
Quarter: 2010Q3

REPORT INFORMATION
  Report Type: 
  Country: None (occurrence: None)
  Receive Date: 20100820
  Receipt Date: 20100806
  Transmission Date: 20110219
  Serious: Yes (Hospitalization, Other)
  Sender: FDA-Public Use
  Company Number: PHHY2010DE46875

PATIENT
  Sex: Female
  Weight: 60 kg

DRUGS (6)
  1. ZOMETA [Suspect]
     Indication: METASTASES TO BONE
     Dosage: 4 MG, UNK
     Route: 042
     Dates: start: 20091202, end: 20100226
  2. PANTOPRAZOLE [Concomitant]
     Indication: GASTRIC DISORDER
  3. FENTANYL CITRATE [Concomitant]
     Indication: PAIN
     Dosage: 50 UG TTS
  4. ERLOTINIB HYDROCHLORIDE [Concomitant]
     Indication: NEOPLASM MALIGNANT
     Dosage: 150 MG, UNK
     Route: 048
     Dates: end: 20100601
  5. NOVAMINSULFON ^BRAUN^ [Concomitant]
     Indication: PAIN
     Dosage: 2500 PO
     Route: 048
  6. DEXAMETHASON ^COPHAR^ [Concomitant]
     Dosage: 2 MG, UNK
     Route: 048
     Dates: end: 20100603

REACTIONS (11)
  - APHAGIA [None]
  - BONE LESION [None]
  - DENTAL OPERATION [None]
  - FISTULA [None]
  - GINGIVAL ERYTHEMA [None]
  - GINGIVAL INFECTION [None]
  - GINGIVAL SWELLING [None]
  - OSTEONECROSIS OF JAW [None]
  - PAIN [None]
  - PAIN IN JAW [None]
  - TOOTHACHE [None]
